FAERS Safety Report 21929291 (Version 3)
Quarter: 2023Q4

REPORT INFORMATION
  Report Type: Report from Study
  Country: JP (occurrence: JP)
  Receive Date: 20230131
  Receipt Date: 20231101
  Transmission Date: 20240110
  Serious: Yes (Hospitalization, Other)
  Sender: FDA-Public Use
  Company Number: JP-KYOWAKIRIN-2019AKK020946

PATIENT
  Age: 39 Year
  Sex: Female

DRUGS (23)
  1. ROMIPLOSTIM [Suspect]
     Active Substance: ROMIPLOSTIM
     Indication: Platelet count decreased
     Dosage: 5 MICROGRAM/KILOGRAM, 5 UG/KG
     Route: 058
     Dates: start: 20191206
  2. MYCOPHENOLATE MOFETIL [Concomitant]
     Active Substance: MYCOPHENOLATE MOFETIL
     Indication: Prophylaxis against graft versus host disease
     Dosage: 1000 MG, BID
     Route: 048
     Dates: start: 20191204
  3. CYCLOSPORINE [Concomitant]
     Active Substance: CYCLOSPORINE
     Indication: Prophylaxis against graft versus host disease
     Dosage: 130 MILLIGRAM
     Route: 041
     Dates: start: 20191204
  4. ACYCLOVIR [Concomitant]
     Active Substance: ACYCLOVIR
     Indication: Antiviral prophylaxis
     Dosage: 200 MG, TID
     Route: 048
     Dates: start: 20191128
  5. LETERMOVIR [Concomitant]
     Active Substance: LETERMOVIR
     Indication: Antiviral prophylaxis
     Dosage: 240 MG, QD
     Route: 048
     Dates: start: 20191219
  6. URSODIOL [Concomitant]
     Active Substance: URSODIOL
     Indication: Hepatobiliary disorder prophylaxis
     Dosage: 200 MG, TID
     Route: 048
     Dates: start: 20191128
  7. LANSOPRAZOLE [Concomitant]
     Active Substance: LANSOPRAZOLE
     Indication: Gastritis prophylaxis
     Dosage: 15 MG, QD
     Route: 048
     Dates: start: 20191128
  8. LOPERAMIDE HYDROCHLORIDE [Concomitant]
     Active Substance: LOPERAMIDE HYDROCHLORIDE
     Indication: Engraftment syndrome
     Dosage: 1 MG, PRN
     Route: 048
     Dates: start: 20191223
  9. SODIUM BICARBONATE [Concomitant]
     Active Substance: SODIUM BICARBONATE
     Indication: Stomatitis
     Dosage: 2 G, BID
     Route: 049
     Dates: start: 20191225
  10. PENTAMIDINE [Concomitant]
     Active Substance: PENTAMIDINE
     Indication: Antifungal prophylaxis
     Dosage: 1 DOSAGE FORM
     Dates: start: 20191129
  11. MICAFUNGIN SODIUM [Concomitant]
     Active Substance: MICAFUNGIN SODIUM
     Indication: Antifungal prophylaxis
     Dosage: 50 MILLIGRAM, QD
     Route: 041
     Dates: start: 20191128
  12. LEUPLIN [Concomitant]
     Active Substance: LEUPROLIDE ACETATE
     Indication: Menstrual cycle management
     Dosage: 1.88 MILLIGRAM, Q4WK
     Route: 058
     Dates: start: 20191121
  13. AMINO ACIDS\DEXTROSE\ELECTROLYTES NOS\MINERALS\VITAMINS [Concomitant]
     Active Substance: AMINO ACIDS\DEXTROSE\ELECTROLYTES NOS\MINERALS\VITAMINS
     Indication: Nausea
     Dosage: 1000 MILLILITER
     Route: 041
     Dates: start: 20191225
  14. MAGNESIUM SULFATE [Concomitant]
     Active Substance: MAGNESIUM SULFATE\MAGNESIUM SULFATE HEPTAHYDRATE
     Indication: Hypomagnesaemia
     Dosage: 20 MILLIEQUIVALENT
     Route: 041
     Dates: start: 20191210
  15. DORIPENEM MONOHYDRATE [Concomitant]
     Active Substance: DORIPENEM MONOHYDRATE
     Indication: Infection prophylaxis
     Dosage: 0.5 GRAM, TID
     Route: 041
     Dates: start: 20191215
  16. FUROSEMIDE [Concomitant]
     Active Substance: FUROSEMIDE
     Indication: Oedema
     Dosage: 20 MG, PRN
     Route: 041
     Dates: start: 20191129
  17. ACETAMINOPHEN [Concomitant]
     Active Substance: ACETAMINOPHEN
     Indication: Bone pain
     Dosage: 600 MG, PRN
     Route: 041
     Dates: start: 20191209
  18. ACETAMINOPHEN [Concomitant]
     Active Substance: ACETAMINOPHEN
     Indication: Engraftment syndrome
     Dosage: UNK
  19. POLARAMINE [Concomitant]
     Active Substance: DEXCHLORPHENIRAMINE MALEATE
     Indication: Allergic transfusion reaction
     Dosage: 5 MG, PRN
     Route: 041
     Dates: start: 20191210
  20. Posterisan [Concomitant]
     Indication: Proctalgia
     Dosage: 1 DF, PRN
     Route: 061
     Dates: start: 20191121
  21. HYDROXYZINE HYDROCHLORIDE [Concomitant]
     Active Substance: HYDROXYZINE HYDROCHLORIDE
     Indication: Insomnia
     Dosage: 25 MILLIGRAM, PRN
     Route: 041
     Dates: start: 20191203
  22. FENTANYL [Concomitant]
     Active Substance: FENTANYL\FENTANYL CITRATE
     Dosage: 0.1 MILLIGRAM
     Dates: start: 20191215
  23. SOLU-CORTEF [Concomitant]
     Active Substance: HYDROCORTISONE SODIUM SUCCINATE
     Indication: Allergic transfusion reaction
     Dosage: 5 MG, PRN
     Route: 040
     Dates: start: 20191210

REACTIONS (1)
  - Acute graft versus host disease [Recovered/Resolved]

NARRATIVE: CASE EVENT DATE: 20191226
